FAERS Safety Report 18963706 (Version 1)
Quarter: 2021Q1

REPORT INFORMATION
  Report Type: Spontaneous
  Country: TR (occurrence: TR)
  Receive Date: 20210303
  Receipt Date: 20210303
  Transmission Date: 20210420
  Serious: No
  Sender: FDA-Public Use
  Company Number: TR-LUPIN PHARMACEUTICALS INC.-2021-02507

PATIENT
  Age: 32 Year
  Sex: Female

DRUGS (6)
  1. SALICYLAZOSULFAPYRIDINE [Concomitant]
     Active Substance: SULFASALAZINE
     Indication: PYODERMA GANGRENOSUM
     Dosage: 1000 MILLIGRAM, QD
     Route: 048
  2. METHYLPREDNISOLONE. [Suspect]
     Active Substance: METHYLPREDNISOLONE
     Indication: PYODERMA GANGRENOSUM
     Dosage: 40 MILLIGRAM, QD
     Route: 042
  3. METHYLPREDNISOLONE. [Interacting]
     Active Substance: METHYLPREDNISOLONE
     Dosage: 40 MILLIGRAM, QD
     Route: 042
  4. METHYLPREDNISOLONE. [Interacting]
     Active Substance: METHYLPREDNISOLONE
     Dosage: 250 MILLIGRAM, QD
     Route: 042
  5. WARFARIN [Interacting]
     Active Substance: WARFARIN
     Indication: PYODERMA GANGRENOSUM
     Dosage: UNK
     Route: 065
  6. CYCLOSPORINE. [Concomitant]
     Active Substance: CYCLOSPORINE
     Indication: PYODERMA GANGRENOSUM
     Dosage: 200 MILLIGRAM, QD
     Route: 048

REACTIONS (7)
  - Skin striae [Unknown]
  - Cushingoid [Unknown]
  - International normalised ratio abnormal [Unknown]
  - Muscular weakness [Unknown]
  - Drug interaction [Unknown]
  - Tachycardia [Unknown]
  - Hypertrichosis [Unknown]
